FAERS Safety Report 18588354 (Version 1)
Quarter: 2020Q4

REPORT INFORMATION
  Report Type: Spontaneous
  Country: US (occurrence: US)
  Receive Date: 20201207
  Receipt Date: 20201207
  Transmission Date: 20210114
  Serious: Yes (Other)
  Sender: FDA-Public Use
  Company Number: US-ELI_LILLY_AND_COMPANY-US202012000192

PATIENT
  Age: 67 Year
  Sex: Male

DRUGS (2)
  1. LANTUS [Concomitant]
     Active Substance: INSULIN GLARGINE
     Indication: PRODUCT USED FOR UNKNOWN INDICATION
     Dosage: 40 U, EACH EVENING (NIGHT)
  2. HUMALOG [Suspect]
     Active Substance: INSULIN LISPRO
     Indication: PRODUCT USED FOR UNKNOWN INDICATION
     Dosage: 15 U, TID
     Route: 065
     Dates: start: 2017

REACTIONS (8)
  - Blood glucose increased [Unknown]
  - Feeling abnormal [Unknown]
  - Weight decreased [Unknown]
  - Blood glucose increased [Unknown]
  - Dizziness [Unknown]
  - Stress [Unknown]
  - Drug ineffective [Unknown]
  - Urine output increased [Unknown]

NARRATIVE: CASE EVENT DATE: 202011
